FAERS Safety Report 7264625-0 (Version None)
Quarter: 2011Q1

REPORT INFORMATION
  Report Type: 
  Country: None (occurrence: None)
  Receive Date: 20110131
  Receipt Date: 20110120
  Transmission Date: 20110831
  Serious: No
  Sender: FDA-Public Use
  Company Number: US-PFIZER INC-2011014726

PATIENT
  Sex: Female
  Weight: 81.633 kg

DRUGS (3)
  1. BUSPAR [Concomitant]
     Indication: DEPRESSION
     Dosage: UNK
  2. TOPAMAX [Concomitant]
     Indication: DEPRESSION
     Dosage: UNK
  3. PRISTIQ [Suspect]
     Indication: DEPRESSION
     Dosage: 50 MG, DAILY
     Route: 048
     Dates: start: 20100701, end: 20110101

REACTIONS (5)
  - FATIGUE [None]
  - PARADOXICAL DRUG REACTION [None]
  - METABOLIC DISORDER [None]
  - ASTHENIA [None]
  - DRUG INEFFECTIVE [None]
